FAERS Safety Report 19176616 (Version 1)
Quarter: 2021Q2

REPORT INFORMATION
  Report Type: Spontaneous
  Country: CN (occurrence: CN)
  Receive Date: 20210423
  Receipt Date: 20210423
  Transmission Date: 20210717
  Serious: Yes (Other)
  Sender: FDA-Public Use
  Company Number: CN-ROCHE-2813892

PATIENT
  Age: 62 Year
  Sex: Male

DRUGS (5)
  1. AVASTIN [Suspect]
     Active Substance: BEVACIZUMAB
     Indication: LUNG ADENOCARCINOMA
     Dosage: MARCH 28, APRIL 23, MAY 21, JUNE 14, JULY 7 AND AUGUST 1, 2020,AVASTIN+PP
     Route: 065
  2. PEMETREXED. [Concomitant]
     Active Substance: PEMETREXED
     Dosage: AUGUST.25, SEPTEMBER 17, OCTOBER 14, NOVEMBER 14, DECEMBER 17, 2020, JANUARY 9, FEBRUARY 3, AND MARC
  3. CISPLATIN. [Concomitant]
     Active Substance: CISPLATIN
     Indication: LUNG ADENOCARCINOMA
     Dosage: MARCH 28, APRIL 23, MAY 21, JUNE 14, JULY 7 AND AUGUST 1, 2020,AVASTIN+PP
  4. PEMETREXED. [Concomitant]
     Active Substance: PEMETREXED
     Indication: LUNG ADENOCARCINOMA
     Dosage: MARCH 28, APRIL 23, MAY 21, JUNE 14, JULY 7 AND AUGUST 1, 2020,AVASTIN+PP
  5. AVASTIN [Suspect]
     Active Substance: BEVACIZUMAB
     Dosage: AUGUST.25, SEPTEMBER 17, OCTOBER 14, NOVEMBER 14, DECEMBER 17, 2020, JANUARY 9, FEBRUARY 3, AND MARC
     Route: 065

REACTIONS (1)
  - Hepatic failure [Unknown]

NARRATIVE: CASE EVENT DATE: 2020
